FAERS Safety Report 6927879-3 (Version None)
Quarter: 2010Q3

REPORT INFORMATION
  Report Type: 
  Country: None (occurrence: None)
  Receive Date: 20100817
  Receipt Date: 20100812
  Transmission Date: 20110219
  Serious: Yes (Death, Hospitalization)
  Sender: FDA-Public Use
  Company Number: PHHY2010DE28018

PATIENT
  Sex: Female

DRUGS (5)
  1. ALISKIREN ALI+ [Suspect]
     Indication: HYPERTENSION
     Dosage: 150 MG, QD
     Route: 048
     Dates: start: 20080101
  2. BETA BLOCKING AGENTS [Concomitant]
  3. DIURETICS [Concomitant]
  4. RAMIPRIL [Concomitant]
     Indication: HYPERTENSION
     Dosage: UNK
     Dates: start: 20090501
  5. CARMEN [Concomitant]
     Indication: HYPERTENSION
     Dosage: UNK
     Dates: start: 20090501

REACTIONS (2)
  - DEATH [None]
  - ENCEPHALITIS HERPES [None]
